FAERS Safety Report 10907582 (Version 1)
Quarter: 2015Q1

REPORT INFORMATION
  Report Type: Spontaneous
  Country: US (occurrence: US)
  Receive Date: 20150312
  Receipt Date: 20150312
  Transmission Date: 20150721
  Serious: No
  Sender: FDA-Public Use
  Company Number: US-PFIZER INC-2015086092

PATIENT
  Age: 55 Year
  Sex: Male
  Weight: 109 kg

DRUGS (1)
  1. NEURONTIN [Suspect]
     Active Substance: GABAPENTIN
     Indication: NEUROPATHY PERIPHERAL
     Dosage: 300 MG, DAILY (ONE BY MOUTH IN THE MORNING, AND TWO IN THE EVENING)
     Dates: start: 2010, end: 2014

REACTIONS (3)
  - Drug effect incomplete [Unknown]
  - Therapeutic response unexpected [Unknown]
  - Pre-existing condition improved [Unknown]
